FAERS Safety Report 17122882 (Version 2)
Quarter: 2020Q1

REPORT INFORMATION
  Report Type: Spontaneous
  Country: JP (occurrence: JP)
  Receive Date: 20191206
  Receipt Date: 20200117
  Transmission Date: 20200409
  Serious: Yes (Life-Threatening, Hospitalization)
  Sender: FDA-Public Use
  Company Number: JP-ASTRAZENECA-2019SF75436

PATIENT
  Age: 41 Year
  Sex: Male

DRUGS (31)
  1. BIPRESSO (QUETIAPINE FUMARATE) [Suspect]
     Active Substance: QUETIAPINE FUMARATE
     Indication: BIPOLAR DISORDER
     Route: 048
     Dates: end: 20191114
  2. BIPRESSO (QUETIAPINE FUMARATE) [Suspect]
     Active Substance: QUETIAPINE FUMARATE
     Indication: DEPRESSION
     Route: 048
     Dates: end: 20191114
  3. BIPRESSO (QUETIAPINE FUMARATE) [Suspect]
     Active Substance: QUETIAPINE FUMARATE
     Indication: ATTENTION DEFICIT/HYPERACTIVITY DISORDER
     Route: 048
     Dates: start: 201912
  4. BIO-THREE [Concomitant]
     Active Substance: HERBALS
     Dates: start: 201807
  5. RISPERIDONE. [Concomitant]
     Active Substance: RISPERIDONE
     Dates: start: 201807
  6. KANAMYCIN [Concomitant]
     Active Substance: KANAMYCIN A SULFATE
     Dates: start: 20191114
  7. BIPRESSO (QUETIAPINE FUMARATE) [Suspect]
     Active Substance: QUETIAPINE FUMARATE
     Indication: BIPOLAR DISORDER
     Route: 048
     Dates: start: 201812, end: 201909
  8. LACTULOSE. [Concomitant]
     Active Substance: LACTULOSE
  9. RIFXIMA [Concomitant]
     Active Substance: RIFAXIMIN
     Dates: start: 201812
  10. BIPRESSO (QUETIAPINE FUMARATE) [Suspect]
     Active Substance: QUETIAPINE FUMARATE
     Indication: ALCOHOLISM
     Route: 048
     Dates: start: 201812, end: 201909
  11. BIPRESSO (QUETIAPINE FUMARATE) [Suspect]
     Active Substance: QUETIAPINE FUMARATE
     Indication: DEPRESSION
     Route: 048
     Dates: start: 201912
  12. BELSOMRA [Concomitant]
     Active Substance: SUVOREXANT
  13. INTUNIV [Concomitant]
     Active Substance: GUANFACINE HYDROCHLORIDE
     Dates: start: 20190919
  14. FUROSEMIDE. [Concomitant]
     Active Substance: FUROSEMIDE
  15. VITAMIN B1 AND B6 [Concomitant]
     Active Substance: PYRIDOXINE HYDROCHLORIDE\THIAMINE HYDROCHLORIDE
     Dates: start: 20171003
  16. URSO 1A PHARMA [Concomitant]
     Dates: start: 201807
  17. VITANEURIN [Concomitant]
     Dates: start: 201807
  18. LAGNOS [Concomitant]
     Dates: start: 20191114
  19. BIPRESSO (QUETIAPINE FUMARATE) [Suspect]
     Active Substance: QUETIAPINE FUMARATE
     Indication: ALCOHOLISM
     Route: 048
     Dates: end: 20191114
  20. BIPRESSO (QUETIAPINE FUMARATE) [Suspect]
     Active Substance: QUETIAPINE FUMARATE
     Indication: ATTENTION DEFICIT/HYPERACTIVITY DISORDER
     Route: 048
     Dates: end: 20191114
  21. BIPRESSO (QUETIAPINE FUMARATE) [Suspect]
     Active Substance: QUETIAPINE FUMARATE
     Indication: ALCOHOLISM
     Route: 048
     Dates: start: 201912
  22. BIPRESSO (QUETIAPINE FUMARATE) [Suspect]
     Active Substance: QUETIAPINE FUMARATE
     Indication: ATTENTION DEFICIT/HYPERACTIVITY DISORDER
     Route: 048
     Dates: start: 201812, end: 201909
  23. BIPRESSO (QUETIAPINE FUMARATE) [Suspect]
     Active Substance: QUETIAPINE FUMARATE
     Indication: DEPRESSION
     Route: 048
     Dates: start: 201812, end: 201909
  24. SENNARIDE [Concomitant]
     Active Substance: SENNOSIDES A AND B
     Dates: start: 201807
  25. MAGMITT [Concomitant]
     Active Substance: MAGNESIUM OXIDE
     Dates: start: 201812
  26. STRATTERA [Concomitant]
     Active Substance: ATOMOXETINE HYDROCHLORIDE
     Dates: start: 201812
  27. PRIMPERAN [Concomitant]
     Active Substance: METOCLOPRAMIDE HYDROCHLORIDE
     Dates: start: 20191107, end: 20191114
  28. BIPRESSO (QUETIAPINE FUMARATE) [Suspect]
     Active Substance: QUETIAPINE FUMARATE
     Indication: BIPOLAR DISORDER
     Route: 048
     Dates: start: 201912
  29. LIVACT [Concomitant]
     Active Substance: AMINO ACIDS, SOURCE UNSPECIFIED
  30. SPIRONOLACTONE. [Concomitant]
     Active Substance: SPIRONOLACTONE
  31. MONILAC [Concomitant]
     Active Substance: LACTULOSE
     Dates: start: 201812

REACTIONS (3)
  - Off label use [Unknown]
  - Hepatic function abnormal [Recovering/Resolving]
  - Blood bilirubin increased [Recovering/Resolving]
